FAERS Safety Report 4349175-3 (Version None)
Quarter: 2004Q2

REPORT INFORMATION
  Report Type: 
  Country: None (occurrence: None)
  Receive Date: 20040427
  Receipt Date: 20030612
  Transmission Date: 20050107
  Serious: Yes (Hospitalization)
  Sender: FDA-Public Use
  Company Number: 000558

PATIENT
  Age: 83 Year
  Sex: Female

DRUGS (4)
  1. . [Concomitant]
  2. ZEVALIN THERAPY .( RITUXIMAB, INDIUM-111-IBRITUMOMAB TIUXETAN, YTTRIUM [Suspect]
     Indication: NON-HODGKIN'S LYMPHOMA
     Dosage: 4 MCI, SINGLE, IN-[111] ZEVALIN, INTRAVENOUS
     Route: 042
     Dates: start: 20030304, end: 20030304
  3. ZEVALIN THERAPY .( RITUXIMAB, INDIUM-111-IBRITUMOMAB TIUXETAN, YTTRIUM [Suspect]
     Indication: NON-HODGKIN'S LYMPHOMA
     Dosage: 395 MG, SINGLE, RITUXAN DOSE 2, INTRAVENOUS
     Route: 042
     Dates: start: 20030311, end: 20030311
  4. ZEVALIN THERAPY .( RITUXIMAB, INDIUM-111-IBRITUMOMAB TIUXETAN, YTTRIUM [Suspect]
     Indication: NON-HODGKIN'S LYMPHOMA
     Dosage: 26.6 MCI, SINGLE, Y-[90] ZEVALIN, INTRAVENOUS
     Route: 042
     Dates: start: 20030311, end: 20030311

REACTIONS (6)
  - ABDOMINAL DISCOMFORT [None]
  - CONSTIPATION [None]
  - DIARRHOEA [None]
  - DISEASE PROGRESSION [None]
  - PANCYTOPENIA [None]
  - PYREXIA [None]
